FAERS Safety Report 8815201 (Version 1)
Quarter: 2012Q4

REPORT INFORMATION
  Report Type: 
  Country: US (occurrence: US)
  Receive Date: 20120928
  Receipt Date: 20120928
  Transmission Date: 20130627
  Serious: Yes (Other)
  Sender: FDA-Public Use
  Company Number: US-PFIZER INC-2012239647

PATIENT
  Age: 69 Year
  Sex: Male
  Weight: 74.8 kg

DRUGS (10)
  1. NEURONTIN [Suspect]
     Indication: DIABETIC NEUROPATHY
     Dosage: 900mg in morning, 900mg in afternoon and 600mg at night
     Route: 048
     Dates: start: 200805, end: 20120718
  2. NEURONTIN [Suspect]
     Dosage: 300mg in morning, 300mg in afternoon and 300mg at night
     Route: 048
     Dates: start: 20120718
  3. NEURONTIN [Suspect]
     Dosage: 300 mg, UNK
     Route: 048
  4. ENALAPRIL [Concomitant]
     Dosage: UNK
  5. ERYTHROMYCIN [Concomitant]
     Dosage: UNK
  6. NEXIUM [Concomitant]
     Dosage: UNK
  7. ATENOLOL [Concomitant]
     Dosage: UNK
  8. METFORMIN [Concomitant]
     Dosage: UNK
  9. PRAVASTATIN [Concomitant]
     Dosage: UNK
  10. ZANTAC [Concomitant]
     Dosage: UNK

REACTIONS (3)
  - Neuralgia [Unknown]
  - Increased appetite [Unknown]
  - Weight increased [Unknown]
